FAERS Safety Report 21973772 (Version 1)
Quarter: 2023Q1

REPORT INFORMATION
  Report Type: Spontaneous
  Country: CN (occurrence: CN)
  Receive Date: 20230209
  Receipt Date: 20230209
  Transmission Date: 20230417
  Serious: Yes (Other)
  Sender: FDA-Public Use
  Company Number: None

PATIENT
  Age: 71 Year
  Sex: Male
  Weight: 85 kg

DRUGS (11)
  1. ENOXAPARIN SODIUM [Suspect]
     Active Substance: ENOXAPARIN SODIUM
     Indication: Pneumonia
     Dosage: 2000 IU, QD
     Route: 058
     Dates: start: 20230118, end: 20230120
  2. ENOXAPARIN SODIUM [Suspect]
     Active Substance: ENOXAPARIN SODIUM
     Dosage: 6000 IU QD
     Route: 058
     Dates: start: 20230120, end: 20230124
  3. METHYLPREDNISOLONE SODIUM SUCCINATE [Suspect]
     Active Substance: METHYLPREDNISOLONE SODIUM SUCCINATE
     Indication: Pneumonia
     Dosage: 40 MG QD
     Route: 041
     Dates: start: 20230118, end: 20230119
  4. ASPIRIN [Suspect]
     Active Substance: ASPIRIN
     Indication: Antiplatelet therapy
     Dosage: 100 MG QD
     Route: 048
     Dates: start: 20230118, end: 20230121
  5. ASPIRIN [Suspect]
     Active Substance: ASPIRIN
     Dosage: 100 MG QD
     Route: 048
     Dates: start: 20230125, end: 20230126
  6. DEXAMETHASONE SODIUM PHOSPHATE [Suspect]
     Active Substance: DEXAMETHASONE SODIUM PHOSPHATE
     Indication: Pneumonia
     Dosage: 5 MG QD
     Route: 041
     Dates: start: 20230119, end: 20230121
  7. DEXAMETHASONE SODIUM PHOSPHATE [Suspect]
     Active Substance: DEXAMETHASONE SODIUM PHOSPHATE
     Dosage: 5 MG QD
     Route: 041
     Dates: start: 20230122, end: 20230126
  8. SODIUM CHLORIDE [Concomitant]
     Active Substance: SODIUM CHLORIDE
     Dosage: 100 ML QD
     Route: 041
     Dates: start: 20230118, end: 20230119
  9. SODIUM CHLORIDE [Concomitant]
     Active Substance: SODIUM CHLORIDE
     Dosage: 100 ML QD
     Route: 041
     Dates: start: 20230119, end: 20230121
  10. SODIUM CHLORIDE [Concomitant]
     Active Substance: SODIUM CHLORIDE
     Dosage: 100 ML QD
     Route: 041
     Dates: start: 20230120, end: 20230124
  11. SODIUM CHLORIDE [Concomitant]
     Active Substance: SODIUM CHLORIDE
     Dosage: 100 ML QD
     Route: 041
     Dates: start: 20230122, end: 20230126

REACTIONS (1)
  - Melaena [Recovering/Resolving]

NARRATIVE: CASE EVENT DATE: 20230126
